FAERS Safety Report 8075570-5 (Version None)
Quarter: 2012Q1

REPORT INFORMATION
  Report Type: 
  Country: None (occurrence: None)
  Receive Date: 20120127
  Receipt Date: 20120116
  Transmission Date: 20120608
  Serious: Yes (Hospitalization)
  Sender: FDA-Public Use
  Company Number: US-BRISTOL-MYERS SQUIBB COMPANY-16351488

PATIENT
  Age: 48 Year
  Sex: Male

DRUGS (2)
  1. SIMVASTATIN [Suspect]
  2. METFORMIN HCL [Suspect]

REACTIONS (1)
  - HEPATOTOXICITY [None]
